FAERS Safety Report 7131340-3 (Version None)
Quarter: 2010Q4

REPORT INFORMATION
  Report Type: 
  Country: None (occurrence: None)
  Receive Date: 20101201
  Receipt Date: 20101126
  Transmission Date: 20110411
  Serious: Yes (Death, Other)
  Sender: FDA-Public Use
  Company Number: US-ROCHE-743676

PATIENT

DRUGS (1)
  1. BEVACIZUMAB [Suspect]
     Indication: MYELOFIBROSIS
     Route: 042

REACTIONS (7)
  - BONE MARROW FAILURE [None]
  - CARDIAC FAILURE [None]
  - DEATH [None]
  - DIARRHOEA [None]
  - INFECTION [None]
  - LIVER FUNCTION TEST ABNORMAL [None]
  - PAIN [None]
